FAERS Safety Report 18134996 (Version 6)
Quarter: 2020Q3

REPORT INFORMATION
  Report Type: Spontaneous
  Country: US (occurrence: US)
  Receive Date: 20200811
  Receipt Date: 20200925
  Transmission Date: 20201103
  Serious: Yes (Other)
  Sender: FDA-Public Use
  Company Number: US-PFIZER INC-2020304459

PATIENT
  Age: 57 Year
  Sex: Female

DRUGS (2)
  1. ADVIL [Suspect]
     Active Substance: IBUPROFEN
     Dosage: 400 MG, ONCE A DAY (TOOK TWO LAST NIGHT AND TWO THIS MORNING)
     Dates: start: 20200805
  2. ADVIL [Suspect]
     Active Substance: IBUPROFEN
     Indication: HEADACHE
     Dosage: 400 MG, ONCE A DAY (TOOK TWO LAST NIGHT)
     Dates: start: 20200805

REACTIONS (5)
  - Poor quality product administered [Unknown]
  - Urticaria [Unknown]
  - Pruritus [Unknown]
  - Product complaint [Unknown]
  - Drug hypersensitivity [Unknown]

NARRATIVE: CASE EVENT DATE: 20200806
